FAERS Safety Report 7675198-2 (Version None)
Quarter: 2011Q3

REPORT INFORMATION
  Report Type: 
  Country: None (occurrence: None)
  Receive Date: 20110810
  Receipt Date: 20110810
  Transmission Date: 20111222
  Serious: Yes (Hospitalization, Disabling)
  Sender: FDA-Public Use
  Company Number: None

PATIENT
  Age: 36 Year
  Sex: Female
  Weight: 145.6 kg

DRUGS (2)
  1. VANCOMYCIN [Suspect]
     Indication: TUBO-OVARIAN ABSCESS
     Dosage: 3GM LOAD, THEN 2GM
     Route: 042
     Dates: start: 20110803, end: 20110805
  2. ZOSYN [Concomitant]
     Dosage: 4.5G
     Route: 042
     Dates: start: 20110803, end: 20110809

REACTIONS (3)
  - NEPHROPATHY TOXIC [None]
  - TUBULOINTERSTITIAL NEPHRITIS [None]
  - DIALYSIS [None]
